FAERS Safety Report 26151706 (Version 1)
Quarter: 2025Q4

REPORT INFORMATION
  Report Type: Spontaneous
  Country: US (occurrence: None)
  Receive Date: 20251212
  Receipt Date: 20251212
  Transmission Date: 20260117
  Serious: No
  Sender: FDA-CTU
  Company Number: None

PATIENT
  Sex: Male

DRUGS (10)
  1. BCG LIVE [Suspect]
     Active Substance: BCG LIVE
  2. BCG LIVE [Suspect]
     Active Substance: BCG LIVE
  3. PEMBROLIZUMAB [Suspect]
     Active Substance: PEMBROLIZUMAB
  4. IRON [Concomitant]
     Active Substance: IRON
  5. LIALDA [Concomitant]
     Active Substance: MESALAMINE
  6. PHENAZOPYRIDINE HYDROCHLORIDE [Concomitant]
     Active Substance: PHENAZOPYRIDINE HYDROCHLORIDE
  7. LIDOCAINE [Concomitant]
     Active Substance: LIDOCAINE
  8. TAMSULOSIN HYDROCHLORIDE [Concomitant]
     Active Substance: TAMSULOSIN HYDROCHLORIDE
  9. BACTRIM [Concomitant]
     Active Substance: SULFAMETHOXAZOLE\TRIMETHOPRIM
  10. ADVIL(IBUPROFEN) [Concomitant]

REACTIONS (3)
  - Bacillus Calmette-Guerin infection [None]
  - Abdominal abscess [None]
  - Mycobacterium tuberculosis complex test positive [None]

NARRATIVE: CASE EVENT DATE: 20241203
